FAERS Safety Report 5165365-4 (Version None)
Quarter: 2006Q4

REPORT INFORMATION
  Report Type: 
  Country: None (occurrence: None)
  Receive Date: 20061206
  Receipt Date: 20060104
  Transmission Date: 20070319
  Serious: Yes (Hospitalization, Other)
  Sender: FDA-Public Use
  Company Number: US-BAYER-200610122BWH

PATIENT
  Age: 47 Year
  Sex: Male
  Weight: 84 kg

DRUGS (13)
  1. SORAFENIB [Suspect]
     Indication: METASTATIC RENAL CELL CARCINOMA
     Dosage: TOTAL DAILY DOSE: 800 MG  UNIT DOSE: 200 MG
     Route: 048
     Dates: start: 20051216, end: 20060103
  2. FENTANYL [Concomitant]
  3. OXYCODONE HCL [Concomitant]
  4. CELEXA [Concomitant]
     Dosage: TOTAL DAILY DOSE: 20 MG  UNIT DOSE: 20 MG
  5. PEPCID [Concomitant]
     Dosage: TOTAL DAILY DOSE: 10 MG  UNIT DOSE: 10 MG
  6. DIAZEPAM [Concomitant]
  7. TYLENOL [Concomitant]
  8. LYRICA [Concomitant]
     Dosage: TOTAL DAILY DOSE: 150 MG  UNIT DOSE: 50 MG
  9. SENOKOT [Concomitant]
     Route: 048
  10. LACTULOSE [Concomitant]
     Indication: CONSTIPATION
  11. ZOMETA [Concomitant]
     Dates: start: 20050119, end: 20051026
  12. AVASTIN [Concomitant]
     Dates: start: 20041229, end: 20051011
  13. INTERFERON [Concomitant]
     Dates: start: 20041229, end: 20051011

REACTIONS (12)
  - BACK PAIN [None]
  - BLOOD BILIRUBIN INCREASED [None]
  - BLOOD UREA DECREASED [None]
  - DISEASE PROGRESSION [None]
  - HAEMOGLOBIN DECREASED [None]
  - HEADACHE [None]
  - HYPOCALCAEMIA [None]
  - HYPONATRAEMIA [None]
  - INFECTION [None]
  - PARAESTHESIA [None]
  - WOUND DEHISCENCE [None]
  - WOUND SECRETION [None]
